FAERS Safety Report 24884909 (Version 1)
Quarter: 2025Q1

REPORT INFORMATION
  Report Type: Spontaneous
  Country: US (occurrence: US)
  Receive Date: 20250124
  Receipt Date: 20250124
  Transmission Date: 20250408
  Serious: No
  Sender: SANOFI AVENTIS
  Company Number: US-SA-2025SA020901

PATIENT
  Age: 46 Year
  Sex: Female

DRUGS (1)
  1. DUPIXENT [Suspect]
     Active Substance: DUPILUMAB
     Indication: Nasal polyps
     Dosage: 300 MG, QOW
     Route: 058
     Dates: start: 202411

REACTIONS (9)
  - Swelling of eyelid [Unknown]
  - Asthenopia [Unknown]
  - Neck pain [Unknown]
  - Myalgia [Unknown]
  - Tenderness [Unknown]
  - Pruritus [Unknown]
  - Pain [Unknown]
  - Acne [Unknown]
  - Arthralgia [Unknown]
